FAERS Safety Report 10182756 (Version 1)
Quarter: 2014Q2

REPORT INFORMATION
  Report Type: Spontaneous
  Country: NG (occurrence: None)
  Receive Date: 20140516
  Receipt Date: 20140516
  Transmission Date: 20141212
  Serious: Yes (Hospitalization)
  Sender: FDA-Public Use
  Company Number: NG-DEXPHARM-20140266

PATIENT
  Age: 42 Year
  Sex: Female

DRUGS (9)
  1. DICLOFENAC [Suspect]
     Indication: PYREXIA
     Route: 048
  2. CEFTRIAXONE [Concomitant]
  3. CO-TRIMOXAZOLE [Concomitant]
  4. DIAZEPAM [Concomitant]
  5. METRONIDAZOLE [Concomitant]
  6. PARACETAMOL [Suspect]
     Indication: PYREXIA
     Route: 048
  7. NEVIRAPINE [Concomitant]
  8. ZIDOVUDINE [Concomitant]
  9. PARACETAMOL [Suspect]
     Indication: PYREXIA
     Route: 030

REACTIONS (9)
  - Generalised tonic-clonic seizure [None]
  - Hyperhidrosis [None]
  - Asthenia [None]
  - Somnolence [None]
  - Pleural effusion [None]
  - Pyrexia [None]
  - Cough [None]
  - Weight decreased [None]
  - Peripheral swelling [None]
